FAERS Safety Report 8557394-5 (Version None)
Quarter: 2012Q3

REPORT INFORMATION
  Report Type: 
  Country: None (occurrence: None)
  Receive Date: 20120726
  Receipt Date: 20120726
  Transmission Date: 20120928
  Serious: No
  Sender: FDA-Public Use
  Company Number: None

PATIENT
  Sex: Female
  Weight: 94.5 kg

DRUGS (2)
  1. CETUXIMAB  16.7 MG [Suspect]
  2. FLUOROURACIL [Suspect]

REACTIONS (3)
  - DRUG HYPERSENSITIVITY [None]
  - LYMPHOCYTE COUNT DECREASED [None]
  - DECREASED APPETITE [None]
